FAERS Safety Report 23542359 (Version 1)
Quarter: 2024Q1

REPORT INFORMATION
  Report Type: Spontaneous
  Country: US (occurrence: US)
  Receive Date: 20240220
  Receipt Date: 20240220
  Transmission Date: 20240410
  Serious: No
  Sender: FDA-Public Use
  Company Number: US-002147023-NVSC2024US034801

PATIENT
  Sex: Female

DRUGS (2)
  1. PAZOPANIB [Suspect]
     Active Substance: PAZOPANIB
     Indication: Angiosarcoma
     Dosage: UNK
     Route: 065
  2. DOXORUBICIN HYDROCHLORIDE [Suspect]
     Active Substance: DOXORUBICIN HYDROCHLORIDE
     Indication: Angiosarcoma
     Dosage: UNK
     Route: 065

REACTIONS (2)
  - Haemoptysis [Unknown]
  - Drug intolerance [Unknown]
